FAERS Safety Report 25351930 (Version 1)
Quarter: 2025Q2

REPORT INFORMATION
  Report Type: Spontaneous
  Country: GR (occurrence: GR)
  Receive Date: 20250523
  Receipt Date: 20250523
  Transmission Date: 20250717
  Serious: Yes (Other)
  Sender: BOEHRINGER INGELHEIM
  Company Number: None

PATIENT
  Age: 78 Year
  Sex: Male
  Weight: 81 kg

DRUGS (5)
  1. JARDIANCE [Suspect]
     Active Substance: EMPAGLIFLOZIN
     Indication: Cardiac dysfunction
     Dates: start: 202412
  2. TRIATEC  5 MG [Concomitant]
     Indication: Hypertension
  3. AMLOPEN  10MG [Concomitant]
  4. Inosamin  50MG [Concomitant]
     Indication: Product used for unknown indication
  5. BLOCATENS  10 MG/TAB [Concomitant]

REACTIONS (1)
  - Glucose urine present [Not Recovered/Not Resolved]

NARRATIVE: CASE EVENT DATE: 20250513
